FAERS Safety Report 10631533 (Version 1)
Quarter: 2014Q4

REPORT INFORMATION
  Report Type: Spontaneous
  Country: US (occurrence: US)
  Receive Date: 20141205
  Receipt Date: 20141205
  Transmission Date: 20150529
  Serious: No
  Sender: FDA-Public Use
  Company Number: US-BRISTOL-MYERS SQUIBB COMPANY-20998928

PATIENT
  Age: 58 Year
  Sex: Female
  Weight: 81.63 kg

DRUGS (2)
  1. GLIPIZIDE. [Concomitant]
     Active Substance: GLIPIZIDE
  2. BYETTA [Suspect]
     Active Substance: EXENATIDE
     Dosage: STRENGTH:BYETTA 10 MCG PEN?DOSE PRESCRIBED 5MCG TWICE DAILY.?DOSE NOT STARTED

REACTIONS (1)
  - Medication error [Unknown]
